FAERS Safety Report 24183679 (Version 1)
Quarter: 2024Q3

REPORT INFORMATION
  Report Type: Spontaneous
  Country: IT (occurrence: IT)
  Receive Date: 20240807
  Receipt Date: 20240807
  Transmission Date: 20241016
  Serious: Yes (Hospitalization)
  Sender: ROCHE
  Company Number: None

PATIENT
  Age: 72 Year
  Sex: Male
  Weight: 70 kg

DRUGS (9)
  1. TRASTUZUMAB [Suspect]
     Active Substance: TRASTUZUMAB
     Indication: HER2 positive colorectal cancer
     Dosage: 8 MG/KG, ON DAY 1 OF EVERY 3 WEEKS (Q3W) (SINGLE LOADING DOSE 8 MG/KG IV ON C1 D1)
     Route: 042
     Dates: start: 20240523, end: 20240523
  2. LOPERAMIDE [Suspect]
     Active Substance: LOPERAMIDE
     Indication: HER2 positive colorectal cancer
     Dosage: 4 MG, THREE TIMES DAILY (DAYS 1 TO 14)
     Route: 065
     Dates: start: 20240523
  3. LOPERAMIDE [Suspect]
     Active Substance: LOPERAMIDE
     Dosage: 4 MG TWICE DAILY (DAY 15 THROUGH DAY 42)
     Route: 065
     Dates: end: 20240623
  4. FLUOROURACIL [Suspect]
     Active Substance: FLUOROURACIL
     Indication: HER2 positive colorectal cancer
     Dosage: 2400 MG/M2 (IV OVER 46-48 HOURS) EVERY 2 WEEKS ON DAYS 1, 15 AND 29 OF EACH 6-WEEK CYCLE
     Route: 042
     Dates: end: 20240618
  5. FLUOROURACIL [Suspect]
     Active Substance: FLUOROURACIL
     Dosage: 400 MG/M2 IV BOLUS
     Route: 042
     Dates: start: 20240523
  6. OXALIPLATIN [Suspect]
     Active Substance: OXALIPLATIN
     Indication: HER2 positive colorectal cancer
     Dosage: 85 MG/M2, EVERY 2 WEEKS ON DAYS 1, 15 AND 29 OF EACH 6-WEEK (42-DAY) CYCLE
     Route: 042
     Dates: start: 20240523, end: 20240618
  7. TUCATINIB [Suspect]
     Active Substance: TUCATINIB
     Indication: HER2 positive colorectal cancer
     Dosage: 300 MG, 2X/DAY (BID)
     Route: 048
     Dates: start: 20240523, end: 20240623
  8. METFORMIN [Concomitant]
     Active Substance: METFORMIN HYDROCHLORIDE
     Indication: Product used for unknown indication
     Dates: start: 2014, end: 20240624
  9. EMPAGLIFLOZIN [Concomitant]
     Active Substance: EMPAGLIFLOZIN
     Indication: Product used for unknown indication
     Dates: start: 2014, end: 20240624

REACTIONS (2)
  - Blood creatinine increased [Recovered/Resolved]
  - Nausea [Unknown]

NARRATIVE: CASE EVENT DATE: 20240527
